FAERS Safety Report 5836944-3 (Version None)
Quarter: 2008Q3

REPORT INFORMATION
  Report Type: 
  Country: None (occurrence: None)
  Receive Date: 20080805
  Receipt Date: 20080723
  Transmission Date: 20090109
  Serious: No
  Sender: FDA-Public Use
  Company Number: LIT-08-0002-W

PATIENT
  Age: 60 Year
  Sex: Female

DRUGS (1)
  1. PHENYTOIN SODIUM [Suspect]
     Indication: CONVULSION PROPHYLAXIS

REACTIONS (3)
  - ERYTHEMA MULTIFORME [None]
  - MUCOSAL INFLAMMATION [None]
  - PRODUCTIVE COUGH [None]
